FAERS Safety Report 18305581 (Version 1)
Quarter: 2020Q3

REPORT INFORMATION
  Report Type: Spontaneous
  Country: US (occurrence: US)
  Receive Date: 20200923
  Receipt Date: 20200923
  Transmission Date: 20201103
  Serious: Yes (Death, Hospitalization, Other)
  Sender: FDA-Public Use
  Company Number: US-TEVA-2020-US-1830375

PATIENT
  Sex: Male

DRUGS (2)
  1. FENTANYL. [Suspect]
     Active Substance: FENTANYL
     Indication: PRODUCT USED FOR UNKNOWN INDICATION
     Route: 065
  2. OXYCODONE [Suspect]
     Active Substance: OXYCODONE
     Route: 065

REACTIONS (10)
  - Drug abuse [Unknown]
  - Theft [Unknown]
  - Abnormal behaviour [Unknown]
  - Suicide attempt [Unknown]
  - Personal relationship issue [Unknown]
  - Drug dependence [Unknown]
  - Educational problem [Unknown]
  - Physical assault [Unknown]
  - Overdose [Fatal]
  - Aggression [Unknown]
